FAERS Safety Report 5579005-3 (Version None)
Quarter: 2008Q1

REPORT INFORMATION
  Report Type: 
  Country: None (occurrence: None)
  Receive Date: 20080102
  Receipt Date: 20071227
  Transmission Date: 20080703
  Serious: Yes (Other)
  Sender: FDA-Public Use
  Company Number: JP-AVENTIS-200713524JP

PATIENT
  Age: 68 Year
  Sex: Male

DRUGS (1)
  1. FUROSEMIDE [Suspect]
     Dates: start: 20060501

REACTIONS (1)
  - VITAMIN B1 DEFICIENCY [None]
